FAERS Safety Report 7950048-5 (Version None)
Quarter: 2011Q4

REPORT INFORMATION
  Report Type: 
  Country: None (occurrence: None)
  Receive Date: 20111130
  Receipt Date: 20111129
  Transmission Date: 20120403
  Serious: No
  Sender: FDA-Public Use
  Company Number: US-B.I. PHARMACEUTICALS,INC./RIDGEFIELD-2011-BP-25587BP

PATIENT
  Age: 63 Year
  Sex: Male

DRUGS (2)
  1. TRADJENTA [Suspect]
     Indication: TYPE 2 DIABETES MELLITUS
     Dosage: 5 MG
     Route: 048
  2. PRAUDIN [Concomitant]

REACTIONS (4)
  - VOMITING [None]
  - BODY TEMPERATURE INCREASED [None]
  - NAUSEA [None]
  - DIARRHOEA [None]
